FAERS Safety Report 21155492 (Version 1)
Quarter: 2022Q3

REPORT INFORMATION
  Report Type: Spontaneous
  Country: US (occurrence: US)
  Receive Date: 20220801
  Receipt Date: 20220801
  Transmission Date: 20221027
  Serious: Yes (Hospitalization)
  Sender: FDA-Public Use
  Company Number: US-MYLANLABS-2022M1081679

PATIENT
  Age: 60 Year
  Sex: Male

DRUGS (4)
  1. RISPERIDONE [Suspect]
     Active Substance: RISPERIDONE
     Indication: Psychotic disorder
     Dosage: UNK
     Route: 065
  2. ZICONOTIDE [Concomitant]
     Active Substance: ZICONOTIDE
     Indication: Back pain
     Dosage: 7.32 MICROGRAM, QD
     Route: 037
  3. ZICONOTIDE [Concomitant]
     Active Substance: ZICONOTIDE
     Dosage: UNK (DOSE REDUCED THEN DISCONTINUED)
     Route: 037
  4. CEFDINIR [Concomitant]
     Active Substance: CEFDINIR
     Indication: Urinary tract infection
     Dosage: UNK
     Route: 065

REACTIONS (1)
  - Drug ineffective [Unknown]
